FAERS Safety Report 23694671 (Version 3)
Quarter: 2025Q3

REPORT INFORMATION
  Report Type: Spontaneous
  Country: EU (occurrence: EU)
  Receive Date: 20240402
  Receipt Date: 20250718
  Transmission Date: 20251021
  Serious: Yes (Hospitalization, Other)
  Sender: ABBVIE
  Company Number: None

PATIENT
  Age: 54 Year
  Sex: Female

DRUGS (1)
  1. BOTOX [Suspect]
     Active Substance: ONABOTULINUMTOXINA
     Indication: Product used for unknown indication
     Route: 065
     Dates: start: 20240222, end: 20240222

REACTIONS (16)
  - Facial paralysis [Unknown]
  - Botulism [Unknown]
  - Paralysis [Not Recovered/Not Resolved]
  - Dysarthria [Unknown]
  - Product administered from unauthorised provider [Unknown]
  - Dysphagia [Not Recovered/Not Resolved]
  - Feeding disorder [Unknown]
  - Dysphonia [Unknown]
  - Fatigue [Unknown]
  - Choking [Unknown]
  - Dyspnoea [Unknown]
  - Asthenia [Unknown]
  - Decreased nasolabial fold [Unknown]
  - Dry mouth [Unknown]
  - Feeling abnormal [Unknown]
  - Tongue disorder [Unknown]

NARRATIVE: CASE EVENT DATE: 20240101
